FAERS Safety Report 17431498 (Version 2)
Quarter: 2020Q1

REPORT INFORMATION
  Report Type: Spontaneous
  Country: US (occurrence: US)
  Receive Date: 20200218
  Receipt Date: 20200323
  Transmission Date: 20200409
  Serious: Yes (Other)
  Sender: FDA-Public Use
  Company Number: US-TEVA-2020-US-1186389

PATIENT
  Age: 23 Year
  Sex: Female

DRUGS (4)
  1. HYDROXYCARBAMIDE [Suspect]
     Active Substance: HYDROXYUREA
     Indication: LEUKOCYTOSIS
     Dosage: ADMINISTERED IN THE RANGE OF 1000MG TO 3000MG DAILY
     Route: 065
  2. DASATINIB. [Suspect]
     Active Substance: DASATINIB
     Dosage: 70 MILLIGRAM DAILY;
     Route: 065
  3. DASATINIB. [Suspect]
     Active Substance: DASATINIB
     Indication: CHRONIC MYELOID LEUKAEMIA
     Dosage: 100 MILLIGRAM DAILY;
     Route: 065
     Dates: start: 200802
  4. CYTARABINE. [Suspect]
     Active Substance: CYTARABINE
     Indication: LEUKOCYTOSIS
     Dosage: ADMINISTERED AT 17, 25 AND 31 WEEKS OF GESTATION
     Route: 042

REACTIONS (3)
  - Drug ineffective [Unknown]
  - Live birth [Unknown]
  - Maternal exposure during pregnancy [Unknown]
